FAERS Safety Report 12088335 (Version 1)
Quarter: 2016Q1

REPORT INFORMATION
  Report Type: Spontaneous
  Country: IN (occurrence: IN)
  Receive Date: 20160218
  Receipt Date: 20160218
  Transmission Date: 20160526
  Serious: Yes (Hospitalization, Other)
  Sender: FDA-Public Use
  Company Number: IN-STRIDES ARCOLAB LIMITED-2016SP000967

PATIENT

DRUGS (2)
  1. CALCITRIOL. [Suspect]
     Active Substance: CALCITRIOL
     Indication: KNEE DEFORMITY
     Dosage: 60000 UNITS ON WEEKLY BASIS
     Route: 048
  2. CALCIUM [Suspect]
     Active Substance: CALCIUM
     Indication: KNEE DEFORMITY
     Dosage: UNK

REACTIONS (18)
  - Electrocardiogram ST segment depression [Recovered/Resolved]
  - Irritability [Recovered/Resolved]
  - Anxiety [Recovered/Resolved]
  - Electrocardiogram T wave abnormal [Recovered/Resolved]
  - Medication error [Unknown]
  - Electrocardiogram T wave amplitude increased [Recovered/Resolved]
  - Hypercalcaemia [Recovered/Resolved]
  - Blood parathyroid hormone decreased [Recovered/Resolved]
  - Dry mouth [Recovered/Resolved]
  - Lethargy [Recovered/Resolved]
  - Dehydration [Recovered/Resolved]
  - Overdose [Unknown]
  - Hypervitaminosis D [Recovered/Resolved]
  - Decreased appetite [Recovered/Resolved]
  - Electrocardiogram QT shortened [Recovered/Resolved]
  - Nephrocalcinosis [Recovered/Resolved]
  - Vomiting [Recovered/Resolved]
  - Hypertension [Recovered/Resolved]
